FAERS Safety Report 9344869 (Version 1)
Quarter: 2013Q2

REPORT INFORMATION
  Report Type: Spontaneous
  Country: CN (occurrence: CN)
  Receive Date: 20130612
  Receipt Date: 20130612
  Transmission Date: 20140414
  Serious: Yes (Hospitalization)
  Sender: FDA-Public Use
  Company Number: CN-GLAXOSMITHKLINE-B0898791A

PATIENT
  Age: 22 Year
  Sex: Female
  Weight: 65 kg

DRUGS (1)
  1. LAMICTAL [Suspect]
     Indication: ILL-DEFINED DISORDER
     Dosage: 25MG PER DAY
     Route: 048
     Dates: start: 20120217, end: 20120302

REACTIONS (7)
  - Rash [Not Recovered/Not Resolved]
  - Oedema mouth [Not Recovered/Not Resolved]
  - Eye swelling [Not Recovered/Not Resolved]
  - Lip ulceration [Not Recovered/Not Resolved]
  - Eye disorder [Not Recovered/Not Resolved]
  - Dysphagia [Not Recovered/Not Resolved]
  - Rash papular [Not Recovered/Not Resolved]
